FAERS Safety Report 16040855 (Version 1)
Quarter: 2019Q1

REPORT INFORMATION
  Report Type: Spontaneous
  Country: US (occurrence: US)
  Receive Date: 20190207
  Receipt Date: 20190207
  Transmission Date: 20190418
  Serious: Yes (Hospitalization)
  Sender: FDA-Public Use
  Company Number: None

PATIENT
  Age: 48 Year
  Sex: Female

DRUGS (13)
  1. ANDANSETRON [Concomitant]
  2. HYDROCODONE [Concomitant]
     Active Substance: HYDROCODONE
  3. MYCOPHENOLATE 500MG [Suspect]
     Active Substance: MYCOPHENOLIC ACID
     Indication: LIVER TRANSPLANT
     Route: 048
     Dates: start: 20170531
  4. LINZESS [Concomitant]
     Active Substance: LINACLOTIDE
  5. ALPRAZOLAM. [Concomitant]
     Active Substance: ALPRAZOLAM
  6. OMEPRAZOLE. [Concomitant]
     Active Substance: OMEPRAZOLE
  7. OMEPRAZOLE. [Concomitant]
     Active Substance: OMEPRAZOLE
  8. MIRTAZAPINE. [Concomitant]
     Active Substance: MIRTAZAPINE
  9. RANITIDINE. [Concomitant]
     Active Substance: RANITIDINE
  10. LOSARTAN. [Concomitant]
     Active Substance: LOSARTAN
  11. MYCOPHENOLATE 250MG [Suspect]
     Active Substance: MYCOPHENOLIC ACID
     Indication: LIVER TRANSPLANT
     Route: 048
     Dates: start: 20170531
  12. MVI [Concomitant]
     Active Substance: VITAMINS
  13. HYDROMORPHINE [Concomitant]
     Active Substance: HYDROMORPHONE

REACTIONS (2)
  - Blood potassium increased [None]
  - Dehydration [None]

NARRATIVE: CASE EVENT DATE: 20190206
